FAERS Safety Report 10687494 (Version 2)
Quarter: 2015Q1

REPORT INFORMATION
  Report Type: Report from Study
  Country: US (occurrence: US)
  Receive Date: 20150102
  Receipt Date: 20150102
  Transmission Date: 20150720
  Serious: Yes (Death, Other)
  Sender: FDA-Public Use
  Company Number: US-CELGENE-163-21880-08040701

PATIENT

DRUGS (4)
  1. ALLOPURINOL. [Concomitant]
     Active Substance: ALLOPURINOL
     Indication: TUMOUR LYSIS SYNDROME
     Dosage: 300 MILLIGRAM
     Route: 065
  2. REVLIMID [Suspect]
     Active Substance: LENALIDOMIDE
     Indication: CHRONIC LYMPHOCYTIC LEUKAEMIA
     Dosage: 5 MILLIGRAM
     Route: 048
  3. ASPIRIN. [Concomitant]
     Active Substance: ASPIRIN
     Indication: THROMBOSIS PROPHYLAXIS
     Route: 065
  4. ANTIBIOTICS [Concomitant]
     Active Substance: UNSPECIFIED INGREDIENT
     Indication: PRODUCT USED FOR UNKNOWN INDICATION
     Route: 065

REACTIONS (57)
  - Dyspnoea [Unknown]
  - Decreased appetite [Unknown]
  - Alanine aminotransferase abnormal [Unknown]
  - Hyperuricaemia [Unknown]
  - Arthralgia [Unknown]
  - Upper respiratory tract infection [Unknown]
  - Ear infection [Unknown]
  - Infection [Unknown]
  - Back pain [Unknown]
  - Pyrexia [Unknown]
  - Bacteraemia [Unknown]
  - Hyperkalaemia [Unknown]
  - Hyperglycaemia [Unknown]
  - Dizziness [Unknown]
  - Flatulence [Unknown]
  - Hyperhidrosis [Unknown]
  - Vomiting [Unknown]
  - Fatigue [Unknown]
  - Pneumonia [Unknown]
  - Gastroenteritis cryptosporidial [Unknown]
  - Diarrhoea [Unknown]
  - Constipation [Unknown]
  - Abdominal pain [Unknown]
  - Headache [Unknown]
  - Abdominal distension [Unknown]
  - Myalgia [Unknown]
  - Oedema peripheral [Unknown]
  - Pneumocystis jirovecii pneumonia [Unknown]
  - Thrombocytopenia [Unknown]
  - Hyperbilirubinaemia [Unknown]
  - Rash [Unknown]
  - Urinary tract infection [Unknown]
  - Blood creatinine abnormal [Unknown]
  - Dry mouth [Unknown]
  - Colon cancer metastatic [Fatal]
  - Richter^s syndrome [Fatal]
  - Syncope [Unknown]
  - Aspartate aminotransferase abnormal [Unknown]
  - Insomnia [Unknown]
  - Cough [Unknown]
  - Nausea [Unknown]
  - Dyspepsia [Unknown]
  - Weight decreased [Unknown]
  - Muscle spasms [Unknown]
  - Neutropenia [Unknown]
  - Tumour flare [Unknown]
  - Gastroenteritis rotavirus [Unknown]
  - Anaemia [Unknown]
  - Pruritus [Unknown]
  - Oral infection [Unknown]
  - Peripheral sensory neuropathy [Unknown]
  - Hypocalcaemia [Unknown]
  - Deep vein thrombosis [Unknown]
  - Hypokalaemia [Unknown]
  - Nervous system disorder [Unknown]
  - Hypomagnesaemia [Unknown]
  - Dry skin [Unknown]
